FAERS Safety Report 26157342 (Version 1)
Quarter: 2025Q4

REPORT INFORMATION
  Report Type: Spontaneous
  Country: GB (occurrence: GB)
  Receive Date: 20251215
  Receipt Date: 20251215
  Transmission Date: 20260117
  Serious: Yes (Other)
  Sender: TEVA
  Company Number: None

PATIENT
  Age: 65 Year
  Sex: Female
  Weight: 78 kg

DRUGS (1)
  1. ATORVASTATIN [Suspect]
     Active Substance: ATORVASTATIN
     Indication: Adverse drug reaction
     Dosage: DAILY DOSAGE: 20MG
     Route: 065
     Dates: start: 20251010, end: 20251122

REACTIONS (2)
  - Arthralgia [Recovering/Resolving]
  - Dizziness postural [Recovered/Resolved]

NARRATIVE: CASE EVENT DATE: 20251013
